FAERS Safety Report 12171793 (Version 1)
Quarter: 2016Q1

REPORT INFORMATION
  Report Type: Spontaneous
  Country: US (occurrence: US)
  Receive Date: 20160311
  Receipt Date: 20160311
  Transmission Date: 20160526
  Serious: No
  Sender: FDA-Public Use
  Company Number: US-GALDERMA-US16000226

PATIENT
  Age: 56 Year
  Sex: Female

DRUGS (6)
  1. NEUTROGENA MOISTURIZER [Concomitant]
     Indication: DRY SKIN PROPHYLAXIS
     Route: 061
  2. MIRVASO [Suspect]
     Active Substance: BRIMONIDINE TARTRATE
     Indication: ROSACEA
     Dosage: 0.33%
     Route: 061
     Dates: start: 201507, end: 201511
  3. MIRVASO [Suspect]
     Active Substance: BRIMONIDINE TARTRATE
     Indication: ROSACEA
     Dosage: 0.33%
     Route: 061
     Dates: start: 20151130
  4. ALLEGRA D (FEXOFENADINE AND PSEUDOEPHEDRINE) [Concomitant]
     Indication: HYPERSENSITIVITY
     Route: 048
  5. UNSPECIFIED FOUNDATION [Concomitant]
     Route: 061
  6. DOVE UNSCENTED BAR SOAP [Concomitant]
     Indication: THERAPEUTIC SKIN CARE TOPICAL
     Route: 061

REACTIONS (3)
  - Erythema [Not Recovered/Not Resolved]
  - Emotional distress [Not Recovered/Not Resolved]
  - Pallor [Recovered/Resolved]

NARRATIVE: CASE EVENT DATE: 201507
